FAERS Safety Report 6914239-4 (Version None)
Quarter: 2010Q3

REPORT INFORMATION
  Report Type: 
  Country: None (occurrence: None)
  Receive Date: 20100809
  Receipt Date: 20100727
  Transmission Date: 20110219
  Serious: Yes (Hospitalization)
  Sender: FDA-Public Use
  Company Number: A0867248A

PATIENT
  Age: 62 Year
  Sex: Male

DRUGS (1)
  1. AVANDIA [Suspect]
     Dosage: 4MG TWICE PER DAY
     Route: 048
     Dates: start: 19990701, end: 20010501

REACTIONS (11)
  - ATRIAL FIBRILLATION [None]
  - BRADYCARDIA [None]
  - CARDIAC FAILURE CONGESTIVE [None]
  - CARDIOVASCULAR DISORDER [None]
  - CEREBROVASCULAR ACCIDENT [None]
  - CORONARY ARTERY DISEASE [None]
  - DYSPNOEA [None]
  - HEART RATE DECREASED [None]
  - HEART RATE IRREGULAR [None]
  - SICK SINUS SYNDROME [None]
  - SUPRAVENTRICULAR TACHYCARDIA [None]
